FAERS Safety Report 17579635 (Version 2)
Quarter: 2020Q4

REPORT INFORMATION
  Report Type: Spontaneous
  Country: SE (occurrence: SE)
  Receive Date: 20200325
  Receipt Date: 20201030
  Transmission Date: 20210113
  Serious: Yes (Hospitalization, Disabling)
  Sender: FDA-Public Use
  Company Number: SE-TEVA-2020-SE-1208856

PATIENT
  Age: 63 Year
  Sex: Female

DRUGS (7)
  1. MINIDERM [Concomitant]
  2. LETROZOL [Concomitant]
     Active Substance: LETROZOLE
  3. VALGANCICLOVIR. [Suspect]
     Active Substance: VALGANCICLOVIR
     Route: 048
     Dates: start: 20191204, end: 20191222
  4. AIROMIR [Concomitant]
     Active Substance: ALBUTEROL SULFATE
  5. BACTRIM [Suspect]
     Active Substance: SULFAMETHOXAZOLE\TRIMETHOPRIM
     Dates: start: 201911, end: 20191222
  6. PAMIDRONATDINATRIUM [Concomitant]
  7. ZOPIKLON [Concomitant]
     Active Substance: ZOPICLONE

REACTIONS (1)
  - Urticaria [Recovered/Resolved]

NARRATIVE: CASE EVENT DATE: 20191220
